FAERS Safety Report 20292253 (Version 1)
Quarter: 2022Q1

REPORT INFORMATION
  Report Type: Spontaneous
  Country: US (occurrence: US)
  Receive Date: 20220104
  Receipt Date: 20220104
  Transmission Date: 20220423
  Serious: No
  Sender: FDA-Public Use
  Company Number: US-COLLEGIUM PHARMACEUTICAL, INC.-2021CGM00079

PATIENT
  Age: 69 Year
  Sex: Female
  Weight: 77.098 kg

DRUGS (23)
  1. NUCYNTA [Suspect]
     Active Substance: TAPENTADOL HYDROCHLORIDE
     Indication: Pain
     Dosage: 50 MG, 6X/DAY (EVERY 4-6 HOURS)
     Route: 048
  2. NUCYNTA [Suspect]
     Active Substance: TAPENTADOL HYDROCHLORIDE
     Indication: Sjogren^s syndrome
     Dosage: 50 MG, 4X/DAY (EVERY 4-6 HOURS)
     Route: 048
  3. NUCYNTA [Suspect]
     Active Substance: TAPENTADOL HYDROCHLORIDE
     Indication: Scoliosis
  4. NUCYNTA [Suspect]
     Active Substance: TAPENTADOL HYDROCHLORIDE
     Indication: Pain in extremity
  5. DULOXETINE [Concomitant]
     Active Substance: DULOXETINE
     Dosage: 90 MG (30 MG AND 60 MG), 1X/DAY IN THE MORNING
  6. DULOXETINE [Concomitant]
     Active Substance: DULOXETINE
     Dosage: 90 MG (30 MG AND 60 MG), 1X/DAY IN THE MORNING
  7. HYSINGLA ER [Concomitant]
     Active Substance: HYDROCODONE BITARTRATE
     Dosage: UNK, 1X/DAY IN THE MORNING
  8. HYSINGLA ER [Concomitant]
     Active Substance: HYDROCODONE BITARTRATE
     Dosage: UNK, EVERY 48 HOURS
  9. ENTRESTO [Concomitant]
     Active Substance: SACUBITRIL\VALSARTAN
     Dosage: UNK, 2X/DAY
  10. CARVEDILOL [Concomitant]
     Active Substance: CARVEDILOL
     Dosage: 12.5 MG, 2X/DAY
  11. LYRICA [Concomitant]
     Active Substance: PREGABALIN
     Dosage: 150 MG, 2X/DAY
  12. VALACYCLOVIR [Concomitant]
     Active Substance: VALACYCLOVIR HYDROCHLORIDE
     Dosage: 500 MG, 2X/DAY
  13. BREO ELLIPTA [Concomitant]
     Active Substance: FLUTICASONE FUROATE\VILANTEROL TRIFENATATE
     Dosage: UNK, 1X/DAY IN THE MORNING
  14. VITAMIN C [Concomitant]
     Active Substance: ASCORBIC ACID
     Dosage: UNK, 2X/DAY
  15. LUTEIN [Concomitant]
     Active Substance: LUTEIN
  16. CO (COENZYME) Q10 [Concomitant]
  17. VITAMIN B COMPLEX [Concomitant]
     Active Substance: CYANOCOBALAMIN\DEXPANTHENOL\NIACINAMIDE\PYRIDOXINE HYDROCHLORIDE\RIBOFLAVIN 5^-PHOSPHATE SODIUM\THIA
  18. CALCIUM [Concomitant]
     Active Substance: CALCIUM
  19. VITAMIN D3 [Concomitant]
     Active Substance: CHOLECALCIFEROL
  20. POTASSIUM [Concomitant]
     Active Substance: POTASSIUM
  21. MAGNESIUM [Concomitant]
     Active Substance: MAGNESIUM
  22. TURMERIC/BLACK PEPPER/CAYENNE PEPPER/CURRY/GINGER [Concomitant]
     Dosage: 2-3 TIMES WEEKLY
  23. EMERGEN C (VITAMIN C) [Concomitant]
     Dosage: 2-3 TIMES WEEKLY

REACTIONS (5)
  - Rotator cuff syndrome [Not Recovered/Not Resolved]
  - Immunoglobulins decreased [Unknown]
  - Sinusitis [Unknown]
  - Product dose omission issue [Not Recovered/Not Resolved]
  - Dyspnoea [Not Recovered/Not Resolved]

NARRATIVE: CASE EVENT DATE: 20210101
